FAERS Safety Report 9342514 (Version 2)
Quarter: 2013Q2

REPORT INFORMATION
  Report Type: Spontaneous
  Country: US (occurrence: US)
  Receive Date: 20130611
  Receipt Date: 20130628
  Transmission Date: 20140414
  Serious: Yes (Hospitalization)
  Sender: FDA-Public Use
  Company Number: US-JNJFOC-20130523000

PATIENT
  Age: 63 Year
  Sex: Female
  Weight: 63.5 kg

DRUGS (6)
  1. ULTRAM [Suspect]
     Indication: ARTHRITIS
     Dosage: EVERY 6-8HOURS
     Route: 048
  2. ULTRAM [Suspect]
     Indication: ARTHRITIS
     Dosage: EVERY 4-5 HOURS
     Route: 048
     Dates: end: 201304
  3. LEVOTHYROXINE [Concomitant]
     Indication: THYROID DISORDER
     Route: 048
  4. VITAMIN D [Concomitant]
     Indication: BONE DISORDER
     Route: 048
  5. MELOXICAM [Concomitant]
     Indication: DEPRESSION
     Route: 048
  6. SERTRALINE [Concomitant]
     Indication: DEPRESSION
     Route: 048

REACTIONS (7)
  - Memory impairment [Unknown]
  - Abnormal loss of weight [Unknown]
  - Tremor [Unknown]
  - Malaise [Unknown]
  - Stress [Unknown]
  - Drug ineffective [Not Recovered/Not Resolved]
  - Decreased appetite [Not Recovered/Not Resolved]
